FAERS Safety Report 16423095 (Version 1)
Quarter: 2019Q2

REPORT INFORMATION
  Report Type: Spontaneous
  Country: US (occurrence: US)
  Receive Date: 20190612
  Receipt Date: 20190612
  Transmission Date: 20190711
  Serious: No
  Sender: FDA-Public Use
  Company Number: US-009507513-1906USA003329

PATIENT
  Sex: Female

DRUGS (13)
  1. JANUVIA [Suspect]
     Active Substance: SITAGLIPTIN PHOSPHATE
     Indication: BLOOD GLUCOSE ABNORMAL
     Dosage: 100 MILLIGRAM, ONCE A DAY
     Route: 048
     Dates: start: 20190307
  2. VITAMIN E [Concomitant]
     Active Substance: .ALPHA.-TOCOPHEROL
  3. SPIRONOLACTONE. [Concomitant]
     Active Substance: SPIRONOLACTONE
  4. TORSEMIDE. [Concomitant]
     Active Substance: TORSEMIDE
  5. ALLOPURINOL. [Concomitant]
     Active Substance: ALLOPURINOL
  6. VITAMIN D (UNSPECIFIED) [Concomitant]
     Active Substance: VITAMIN D NOS
  7. CENTRUM SILVER [Concomitant]
     Active Substance: MINERALS\VITAMINS
  8. CITRACAL [Concomitant]
     Active Substance: CALCIUM CITRATE
  9. TRAJENTA [Concomitant]
     Active Substance: LINAGLIPTIN
  10. OMEPRAZOLE. [Concomitant]
     Active Substance: OMEPRAZOLE
  11. LEVOTHYROXINE SODIUM. [Concomitant]
     Active Substance: LEVOTHYROXINE SODIUM
  12. BENAZEPRIL HYDROCHLORIDE. [Concomitant]
     Active Substance: BENAZEPRIL HYDROCHLORIDE
  13. ATORVASTATIN [Concomitant]
     Active Substance: ATORVASTATIN

REACTIONS (7)
  - Arthralgia [Not Recovered/Not Resolved]
  - Muscle spasms [Not Recovered/Not Resolved]
  - Back pain [Not Recovered/Not Resolved]
  - Somnolence [Not Recovered/Not Resolved]
  - Fatigue [Not Recovered/Not Resolved]
  - Hypotension [Recovered/Resolved]
  - Blood pressure fluctuation [Not Recovered/Not Resolved]

NARRATIVE: CASE EVENT DATE: 2019
